FAERS Safety Report 6272627-6 (Version None)
Quarter: 2009Q3

REPORT INFORMATION
  Report Type: 
  Country: None (occurrence: None)
  Receive Date: 20090717
  Receipt Date: 20090708
  Transmission Date: 20100115
  Serious: Yes (Hospitalization)
  Sender: FDA-Public Use
  Company Number: CH-ASTRAZENECA-2009SE04376

PATIENT
  Age: 81 Year
  Sex: Female

DRUGS (4)
  1. TENORETIC 100 [Suspect]
     Dosage: ONE TABLET PER DAY
     Route: 048
  2. TIATRAL [Concomitant]
     Route: 048
  3. FOSAMAX [Concomitant]
     Dosage: ONE PER WEEK
     Route: 048
  4. ISOPTIN RR [Concomitant]

REACTIONS (4)
  - AGITATION [None]
  - HYPOKALAEMIA [None]
  - HYPONATRAEMIA [None]
  - SPEECH DISORDER [None]
